FAERS Safety Report 14266930 (Version 2)
Quarter: 2018Q1

REPORT INFORMATION
  Report Type: Report from Study
  Country: US (occurrence: US)
  Receive Date: 20171211
  Receipt Date: 20180214
  Transmission Date: 20180508
  Serious: Yes (Life-Threatening)
  Sender: FDA-Public Use
  Company Number: US-B.I. PHARMACEUTICALS,INC./RIDGEFIELD-2017-BI-065753

PATIENT
  Sex: Male
  Weight: 123.38 kg

DRUGS (1)
  1. OFEV [Suspect]
     Active Substance: NINTEDANIB
     Indication: IDIOPATHIC PULMONARY FIBROSIS
     Route: 048
     Dates: start: 20171201

REACTIONS (5)
  - Epistaxis [Recovered/Resolved]
  - Idiopathic pulmonary fibrosis [Unknown]
  - Dyspnoea [Unknown]
  - Oxygen saturation decreased [Not Recovered/Not Resolved]
  - Feeling abnormal [Not Recovered/Not Resolved]
